FAERS Safety Report 4509723-7 (Version None)
Quarter: 2004Q4

REPORT INFORMATION
  Report Type: 
  Country: None (occurrence: None)
  Receive Date: 20041124
  Receipt Date: 20041116
  Transmission Date: 20050328
  Serious: Yes (Other)
  Sender: FDA-Public Use
  Company Number: PHEH2004US12476

PATIENT
  Age: 22 Year
  Sex: Female

DRUGS (4)
  1. CLOZARIL [Suspect]
     Indication: BIPOLAR DISORDER
     Dosage: 100 MG/DAY
     Route: 048
     Dates: start: 20041001, end: 20041104
  2. PRILOSEC [Concomitant]
  3. IMITREX ^CERENEX^ [Concomitant]
  4. SEROQUEL [Concomitant]

REACTIONS (10)
  - ABDOMINAL PAIN UPPER [None]
  - CHOLECYSTECTOMY [None]
  - CHOLECYSTITIS ACUTE [None]
  - DIARRHOEA [None]
  - DRUG TOXICITY [None]
  - HEPATOCELLULAR DAMAGE [None]
  - INFLUENZA LIKE ILLNESS [None]
  - NAUSEA [None]
  - PYREXIA [None]
  - VOMITING [None]
